FAERS Safety Report 23110779 (Version 1)
Quarter: 2023Q4

REPORT INFORMATION
  Report Type: Report from Study
  Country: IT (occurrence: IT)
  Receive Date: 20231026
  Receipt Date: 20231026
  Transmission Date: 20240109
  Serious: Yes (Other)
  Sender: FDA-Public Use
  Company Number: IT-JAZZ PHARMACEUTICALS-2020-IT-014776

PATIENT
  Age: 7 Year

DRUGS (1)
  1. DEFITELIO [Suspect]
     Active Substance: DEFIBROTIDE SODIUM
     Indication: Venoocclusive disease
     Dosage: UNKNOWN DOSE
     Dates: start: 20180712, end: 20180801

REACTIONS (2)
  - Venoocclusive disease [Unknown]
  - Disease progression [Unknown]

NARRATIVE: CASE EVENT DATE: 20180101
